FAERS Safety Report 9103144 (Version 2)
Quarter: 2013Q1

REPORT INFORMATION
  Report Type: Spontaneous
  Country: BO (occurrence: BO)
  Receive Date: 20130219
  Receipt Date: 20130301
  Transmission Date: 20140127
  Serious: Yes (Death, Other)
  Sender: FDA-Public Use
  Company Number: PHHY2012BO094763

PATIENT
  Age: 63 Year
  Sex: Male

DRUGS (2)
  1. GLIVEC [Suspect]
     Indication: CHRONIC MYELOID LEUKAEMIA
     Dosage: 300 MG DAILY
     Dates: start: 20050221
  2. GLIVEC [Suspect]
     Dosage: 400 MG DAILY
     Dates: start: 20120920

REACTIONS (10)
  - Death [Fatal]
  - Deep vein thrombosis [Unknown]
  - Pulmonary embolism [Unknown]
  - Renal failure [Unknown]
  - Hepatic failure [Unknown]
  - Cachexia [Unknown]
  - Food intolerance [Unknown]
  - General physical health deterioration [Unknown]
  - Hypophagia [Unknown]
  - Haemoglobin decreased [Unknown]
